FAERS Safety Report 5330480-9 (Version None)
Quarter: 2007Q2

REPORT INFORMATION
  Report Type: 
  Country: None (occurrence: None)
  Receive Date: 20070521
  Receipt Date: 20070511
  Transmission Date: 20071010
  Serious: Yes (Hospitalization)
  Sender: FDA-Public Use
  Company Number: US-AMGEN-US222225

PATIENT
  Sex: Male
  Weight: 102.2 kg

DRUGS (8)
  1. ARANESP [Suspect]
     Indication: ANAEMIA
     Route: 058
     Dates: start: 20070330, end: 20070412
  2. PROCRIT [Suspect]
     Indication: DRUG USE FOR UNKNOWN INDICATION
     Dates: start: 20070228
  3. BUMEX [Concomitant]
     Route: 065
  4. K-DUR 10 [Concomitant]
     Route: 065
  5. COUMADIN [Concomitant]
     Route: 065
     Dates: start: 20070315
  6. TYLENOL [Concomitant]
  7. BENADRYL [Concomitant]
  8. IRON [Concomitant]

REACTIONS (11)
  - CARDIAC FAILURE [None]
  - DEEP VEIN THROMBOSIS [None]
  - GENERALISED OEDEMA [None]
  - NUTRITIONAL CONDITION ABNORMAL [None]
  - PLEURAL EFFUSION [None]
  - PNEUMONIA [None]
  - PSEUDOMONAS INFECTION [None]
  - PULMONARY EMBOLISM [None]
  - RASH ERYTHEMATOUS [None]
  - RESPIRATORY ARREST [None]
  - SPLENIC HAEMATOMA [None]
